FAERS Safety Report 8977409 (Version 2)
Quarter: 2012Q4

REPORT INFORMATION
  Report Type: 
  Country: DE (occurrence: DE)
  Receive Date: 20121220
  Receipt Date: 20121227
  Transmission Date: 20130627
  Serious: Yes (Life-Threatening)
  Sender: FDA-Public Use
  Company Number: DE-WATSON-2012-22178

PATIENT
  Age: 25 Year
  Sex: Male

DRUGS (4)
  1. PREDNISOLONE (UNKNOWN) [Suspect]
     Indication: CROHN^S DISEASE
     Dosage: 50 mg, daily
     Route: 065
  2. OXYCODONE [Concomitant]
     Indication: PRODUCT USED FOR UNKNOWN INDICATION
     Dosage: 20 mg, bid
     Route: 065
  3. CALCIUM D3                         /00944201/ [Concomitant]
     Indication: PRODUCT USED FOR UNKNOWN INDICATION
     Dosage: UNK, unknown
     Route: 065
  4. PANTOZOL [Concomitant]
     Indication: PRODUCT USED FOR UNKNOWN INDICATION
     Dosage: 40 mg, daily
     Route: 065

REACTIONS (5)
  - Adrenocortical insufficiency acute [Unknown]
  - Pulmonary oedema [Unknown]
  - Congestive cardiomyopathy [Unknown]
  - Incorrect drug administration duration [Unknown]
  - Medication error [Unknown]
